FAERS Safety Report 8415483-X (Version None)
Quarter: 2012Q2

REPORT INFORMATION
  Report Type: 
  Country: None (occurrence: None)
  Receive Date: 20120606
  Receipt Date: 20120604
  Transmission Date: 20120825
  Serious: Yes (Other)
  Sender: FDA-Public Use
  Company Number: PHEH2012US005000

PATIENT
  Sex: Male

DRUGS (1)
  1. ZOMETA [Suspect]
     Indication: PROSTATE CANCER
     Route: 042
     Dates: start: 20110627

REACTIONS (6)
  - TOOTH LOSS [None]
  - PAIN [None]
  - PAIN IN JAW [None]
  - HEADACHE [None]
  - OSTEONECROSIS OF JAW [None]
  - BONE LESION [None]
